FAERS Safety Report 6024727-3 (Version None)
Quarter: 2008Q4

REPORT INFORMATION
  Report Type: 
  Country: None (occurrence: None)
  Receive Date: 20081231
  Receipt Date: 20081231
  Transmission Date: 20090506
  Serious: Yes (Other)
  Sender: FDA-Public Use
  Company Number: US-PFIZER INC-2008087803

PATIENT
  Sex: Female
  Weight: 159 kg

DRUGS (4)
  1. CHANTIX [Suspect]
     Indication: SMOKING CESSATION THERAPY
     Dates: start: 20081006
  2. ALBUTEROL [Concomitant]
  3. LITHIUM [Concomitant]
  4. AMLODIPINE [Concomitant]

REACTIONS (1)
  - BIPOLAR DISORDER [None]
